FAERS Safety Report 4576080-X (Version None)
Quarter: 2005Q1

REPORT INFORMATION
  Report Type: 
  Country: None (occurrence: None)
  Receive Date: 20050201
  Receipt Date: 20050201
  Transmission Date: 20050727
  Serious: Yes (Disabling, Other)
  Sender: FDA-Public Use
  Company Number: None

PATIENT
  Age: 30 Year
  Sex: Female
  Weight: 63.5036 kg

DRUGS (6)
  1. ZICAM NASAL GEL            MATRIXX    (ZN) [Suspect]
     Indication: NASOPHARYNGITIS
     Dosage: 2 SPRAYS   2X/DAY   NASAL
     Route: 045
     Dates: start: 20050124, end: 20050126
  2. ZICAM MISTS  - ORAL AND COUGH +      MATRIXX  (ZN) [Suspect]
     Indication: NASOPHARYNGITIS
     Dosage: 3 SPRAYS   EACH 4 HRS  ORAL
     Route: 048
     Dates: start: 20050124, end: 20050128
  3. ACIPHEX [Concomitant]
  4. SINGULAIR [Concomitant]
  5. FLONASE [Concomitant]
  6. MULTIVIT + XTRA C AND E [Concomitant]

REACTIONS (2)
  - AGEUSIA [None]
  - ANOSMIA [None]
